FAERS Safety Report 16031923 (Version 2)
Quarter: 2019Q1

REPORT INFORMATION
  Report Type: Spontaneous
  Country: US (occurrence: US)
  Receive Date: 20190304
  Receipt Date: 20190305
  Transmission Date: 20190418
  Serious: Yes (Death, Hospitalization)
  Sender: FDA-Public Use
  Company Number: US-CELGENEUS-USA-20190209762

PATIENT
  Age: 92 Year
  Sex: Male

DRUGS (1)
  1. POMALYST [Suspect]
     Active Substance: POMALIDOMIDE
     Indication: PLASMA CELL MYELOMA
     Dosage: 2 MILLIGRAM
     Route: 048
     Dates: start: 201812, end: 201902

REACTIONS (10)
  - Rib fracture [Unknown]
  - Humerus fracture [Unknown]
  - Skin haemorrhage [Unknown]
  - Fall [Unknown]
  - Dysphagia [Unknown]
  - Foot fracture [Unknown]
  - Atrial fibrillation [Unknown]
  - Death [Fatal]
  - Performance status decreased [Unknown]
  - Pneumonia [Unknown]

NARRATIVE: CASE EVENT DATE: 2019
